FAERS Safety Report 7440899-8 (Version None)
Quarter: 2011Q2

REPORT INFORMATION
  Report Type: 
  Country: None (occurrence: None)
  Receive Date: 20110427
  Receipt Date: 20110415
  Transmission Date: 20111010
  Serious: Yes (Death, Hospitalization, Other)
  Sender: FDA-Public Use
  Company Number: US-AMGEN-USASP2011020372

PATIENT
  Age: 82 Year
  Sex: Female
  Weight: 39.909 kg

DRUGS (5)
  1. CREON [Concomitant]
     Dosage: UNK
     Route: 048
  2. PROCRIT [Suspect]
     Indication: APLASTIC ANAEMIA
     Dosage: 40000 UNIT, UNK
     Route: 058
  3. NORVASC [Concomitant]
     Dosage: UNK
     Route: 048
  4. SYNTHROID [Concomitant]
     Dosage: UNK
     Route: 048
  5. DIOVAN [Concomitant]
     Dosage: UNK
     Route: 048

REACTIONS (6)
  - MYOCARDIAL INFARCTION [None]
  - GALLBLADDER DISORDER [None]
  - TACHYCARDIA [None]
  - CARDIAC DISORDER [None]
  - MALAISE [None]
  - CEREBROVASCULAR ACCIDENT [None]
